FAERS Safety Report 9203254 (Version 1)
Quarter: 2013Q2

REPORT INFORMATION
  Report Type: Report from Study
  Country: BE (occurrence: BE)
  Receive Date: 20130402
  Receipt Date: 20130402
  Transmission Date: 20140414
  Serious: Yes (Death)
  Sender: FDA-Public Use
  Company Number: BE-UCBSA-078509

PATIENT
  Sex: 0

DRUGS (1)
  1. LACOSAMIDE [Suspect]
     Dosage: LOAD OF 200 MG, FOLLOWED 12 HOURS LATER BY ANOTHER DOSE OF 200 MG
     Route: 042

REACTIONS (1)
  - Drug ineffective [Fatal]
